FAERS Safety Report 21347539 (Version 2)
Quarter: 2022Q4

REPORT INFORMATION
  Report Type: Spontaneous
  Country: CN (occurrence: CN)
  Receive Date: 20220919
  Receipt Date: 20221129
  Transmission Date: 20230112
  Serious: Yes (Hospitalization, Other)
  Sender: FDA-Public Use
  Company Number: CN-NOVOPROD-951453

PATIENT
  Age: 47 Year
  Sex: Male

DRUGS (3)
  1. INSULIN ASPART [Suspect]
     Active Substance: INSULIN ASPART
     Indication: Product used for unknown indication
     Dosage: UNK
  2. INSULIN ASPART [Suspect]
     Active Substance: INSULIN ASPART
     Dosage: 50 IU, BID
  3. INSULIN ASPART [Suspect]
     Active Substance: INSULIN ASPART
     Dosage: 30 IU, BID (EVERY MORNING AND EVENING)
     Dates: start: 20220816

REACTIONS (5)
  - Rib fracture [Unknown]
  - Road traffic accident [Unknown]
  - Diabetes mellitus inadequate control [Not Recovered/Not Resolved]
  - Liquid product physical issue [Unknown]
  - Suspected product quality issue [Unknown]

NARRATIVE: CASE EVENT DATE: 20220801
